FAERS Safety Report 18254265 (Version 6)
Quarter: 2021Q1

REPORT INFORMATION
  Report Type: Report from Study
  Country: US (occurrence: US)
  Receive Date: 20200910
  Receipt Date: 20210112
  Transmission Date: 20210419
  Serious: Yes (Other)
  Sender: FDA-Public Use
  Company Number: NVSC2020US247570

PATIENT
  Sex: Male

DRUGS (2)
  1. TABRECTA [Suspect]
     Active Substance: CAPMATINIB
     Dosage: UNK
     Route: 048
  2. TABRECTA [Suspect]
     Active Substance: CAPMATINIB
     Indication: PRODUCT USED FOR UNKNOWN INDICATION
     Dosage: UNK
     Route: 048

REACTIONS (18)
  - Fatigue [Unknown]
  - Aspiration pleural cavity [Unknown]
  - White blood cell count increased [Unknown]
  - Neoplasm [Unknown]
  - Weight decreased [Unknown]
  - Malaise [Unknown]
  - Aphonia [Unknown]
  - Vomiting [Unknown]
  - Infection [Unknown]
  - Illness [Unknown]
  - Asthenia [Unknown]
  - Peripheral swelling [Unknown]
  - Laryngitis [Unknown]
  - Vocal cord paralysis [Unknown]
  - Eating disorder [Unknown]
  - Diarrhoea [Unknown]
  - Nausea [Unknown]
  - Weight increased [Unknown]
